FAERS Safety Report 10755246 (Version 1)
Quarter: 2015Q1

REPORT INFORMATION
  Report Type: Spontaneous
  Country: CL (occurrence: CL)
  Receive Date: 20150202
  Receipt Date: 20150202
  Transmission Date: 20150721
  Serious: Yes (Other)
  Sender: FDA-Public Use
  Company Number: CL-PFIZER INC-2015036909

PATIENT
  Age: 78 Year
  Sex: Female

DRUGS (1)
  1. XALATAN [Suspect]
     Active Substance: LATANOPROST
     Dosage: UNK
     Dates: start: 201312

REACTIONS (3)
  - Tongue injury [Unknown]
  - Accident [Unknown]
  - Vocal cord neoplasm [Unknown]

NARRATIVE: CASE EVENT DATE: 201406
